FAERS Safety Report 8463648-3 (Version None)
Quarter: 2012Q2

REPORT INFORMATION
  Report Type: 
  Country: None (occurrence: None)
  Receive Date: 20120625
  Receipt Date: 20120615
  Transmission Date: 20120825
  Serious: Yes (Other)
  Sender: FDA-Public Use
  Company Number: US-JNJFOC-20120608762

PATIENT

DRUGS (10)
  1. RITUXIMAB [Suspect]
     Indication: DIFFUSE LARGE B-CELL LYMPHOMA
     Dosage: 21 DAY CYCLE
     Route: 042
  2. TRIMETHOPRIM + SULFAMETHOXAZOLE [Concomitant]
     Indication: ANTIFUNGAL PROPHYLAXIS
     Route: 065
  3. ANTIEMETIC MEDICATION [Concomitant]
     Indication: VOMITING
     Route: 065
  4. VINCRISTINE [Suspect]
     Indication: DIFFUSE LARGE B-CELL LYMPHOMA
     Dosage: 21 DAY CYCLE
     Route: 042
  5. SARGRAMOSTIM [Suspect]
     Indication: DIFFUSE LARGE B-CELL LYMPHOMA
     Dosage: 21 DAY CYCLE
     Route: 058
  6. DAPSONE [Concomitant]
     Indication: ANTIFUNGAL PROPHYLAXIS
     Route: 065
  7. PREDNISONE TAB [Suspect]
     Indication: DIFFUSE LARGE B-CELL LYMPHOMA
     Dosage: 21 DAY CYCLE
     Route: 048
  8. ANTIBIOTICS [Concomitant]
     Route: 065
  9. DOXORUBICIN HCL [Suspect]
     Indication: DIFFUSE LARGE B-CELL LYMPHOMA
     Dosage: 21 DAY CYCLE
     Route: 042
  10. CYCLOPHOSPHAMIDE [Suspect]
     Indication: DIFFUSE LARGE B-CELL LYMPHOMA
     Dosage: 21 DAY CYCLE
     Route: 042

REACTIONS (1)
  - CYTOKINE RELEASE SYNDROME [None]
